FAERS Safety Report 26160177 (Version 1)
Quarter: 2025Q4

REPORT INFORMATION
  Report Type: Spontaneous
  Country: EU (occurrence: EU)
  Receive Date: 20251216
  Receipt Date: 20251216
  Transmission Date: 20260118
  Serious: Yes (Other)
  Sender: AUROBINDO
  Company Number: EU-002147023-NVSC2025DE182930

PATIENT
  Sex: Female
  Weight: 127 kg

DRUGS (3)
  1. LETROZOLE [Suspect]
     Active Substance: LETROZOLE
     Indication: Hormone receptor positive HER2 negative breast cancer
     Dosage: 2.5 MILLIGRAM, ONCE A DAY  (TOTAL DAILY DOSE)
     Route: 061
     Dates: start: 20250825
  2. KISQALI [Suspect]
     Active Substance: RIBOCICLIB SUCCINATE
     Indication: Hormone receptor positive HER2 negative breast cancer
     Dosage: 400 MILLIGRAM, ONCE A DAY (TOTAL DAILY DOSE),21 DAYS DAILY INTAKE, 7 DAYS PAUS)
     Route: 061
     Dates: start: 20250825, end: 20251124
  3. KISQALI [Suspect]
     Active Substance: RIBOCICLIB SUCCINATE
     Dosage: 200 MILLIGRAM, ONCE A DAY (TOTAL DAILY DOSE),21 DAYS DAILY INTAKE, 7 DAYS PAUSE
     Route: 061
     Dates: start: 20251124

REACTIONS (2)
  - Infection in an immunocompromised host [Not Recovered/Not Resolved]
  - CD4 lymphocytes decreased [Unknown]

NARRATIVE: CASE EVENT DATE: 20251028
